FAERS Safety Report 17305840 (Version 5)
Quarter: 2021Q2

REPORT INFORMATION
  Report Type: Spontaneous
  Country: IT (occurrence: IT)
  Receive Date: 20200123
  Receipt Date: 20210413
  Transmission Date: 20210716
  Serious: Yes (Other)
  Sender: FDA-Public Use
  Company Number: IT-AEGERION PHARMACEUTICAL, INC-AEGR004556

PATIENT

DRUGS (11)
  1. EPA DHA 720 [Concomitant]
     Active Substance: DOCONEXENT\ICOSAPENT
     Indication: HYPERLIPIDAEMIA
     Dosage: 3 G, QD
  2. AMLODIPINE [Concomitant]
     Active Substance: AMLODIPINE BESYLATE
     Indication: HYPERTENSION
     Dosage: 10 MG, QD
  3. LINOLEIC ACID [Concomitant]
     Active Substance: LINOLEIC ACID
     Indication: HYPERLIPIDAEMIA
     Dosage: 200 MILLIGRAM
  4. LOMITAPIDE [Suspect]
     Active Substance: LOMITAPIDE MESYLATE
     Dosage: 40 MG, QD
     Route: 048
     Dates: start: 20180330, end: 20190123
  5. LOMITAPIDE [Suspect]
     Active Substance: LOMITAPIDE MESYLATE
     Dosage: 30 MG, QD
     Route: 048
     Dates: start: 20190124
  6. LOMITAPIDE [Suspect]
     Active Substance: LOMITAPIDE MESYLATE
     Dosage: 10 MG, QD
     Route: 048
     Dates: start: 20171228, end: 20180102
  7. FENOFIBRATE. [Concomitant]
     Active Substance: FENOFIBRATE
     Indication: HYPERLIPIDAEMIA
     Dosage: 145 MG, QD
  8. LOMITAPIDE [Suspect]
     Active Substance: LOMITAPIDE MESYLATE
     Indication: HYPERCHYLOMICRONAEMIA
     Dosage: 5 MG, QD
     Route: 048
     Dates: start: 20171103, end: 20171227
  9. LOMITAPIDE [Suspect]
     Active Substance: LOMITAPIDE MESYLATE
     Dosage: 20 MG, QD
     Route: 048
     Dates: start: 20180103, end: 20180329
  10. VITAMIN E                          /00110501/ [Concomitant]
     Active Substance: TOCOPHEROL
     Indication: HYPERLIPIDAEMIA
     Dosage: 400 UNITS, QD
  11. LINOLENIC ACID [Concomitant]
     Active Substance: LINOLENIC ACID
     Indication: HYPERLIPIDAEMIA
     Dosage: 210 MILLIGRAM

REACTIONS (13)
  - Abdominal pain [Unknown]
  - Aspartate aminotransferase increased [Recovered/Resolved]
  - Off label use [Unknown]
  - Therapy interrupted [Unknown]
  - Diet noncompliance [Unknown]
  - Nonalcoholic fatty liver disease [Not Recovered/Not Resolved]
  - Nausea [Unknown]
  - Diarrhoea [Unknown]
  - Alanine aminotransferase increased [Recovered/Resolved]
  - Hypogammaglobulinaemia [Unknown]
  - Vomiting [Unknown]
  - Influenza [Recovered/Resolved]
  - Blood triglycerides increased [Unknown]

NARRATIVE: CASE EVENT DATE: 201706
